FAERS Safety Report 5691785-5 (Version None)
Quarter: 2008Q2

REPORT INFORMATION
  Report Type: 
  Country: None (occurrence: None)
  Receive Date: 20080402
  Receipt Date: 20080320
  Transmission Date: 20081010
  Serious: Yes (Other)
  Sender: FDA-Public Use
  Company Number: PHRM2008FR01109

PATIENT
  Sex: Female

DRUGS (1)
  1. VISKEN [Suspect]
     Indication: ESSENTIAL HYPERTENSION
     Dosage: 5 MG, BID
     Route: 048

REACTIONS (2)
  - BLOOD CREATINE PHOSPHOKINASE INCREASED [None]
  - PAIN IN EXTREMITY [None]
